FAERS Safety Report 9379820 (Version 2)
Quarter: 2013Q3

REPORT INFORMATION
  Report Type: Spontaneous
  Country: US (occurrence: US)
  Receive Date: 20130702
  Receipt Date: 20130723
  Transmission Date: 20140515
  Serious: Yes (Hospitalization)
  Sender: FDA-Public Use
  Company Number: US-GILEAD-2013-0077425

PATIENT
  Age: 34 Year
  Sex: Male

DRUGS (4)
  1. LETAIRIS [Suspect]
     Indication: PULMONARY ARTERIAL HYPERTENSION
     Dosage: 10 MG, QD
     Dates: start: 20110809
  2. LETAIRIS [Suspect]
     Indication: SICKLE CELL ANAEMIA
  3. LETAIRIS [Suspect]
     Indication: EXERCISE ADEQUATE
  4. REMODULIN [Concomitant]

REACTIONS (2)
  - Tenderness [Unknown]
  - Fluid overload [Unknown]
